FAERS Safety Report 9211477 (Version 2)
Quarter: 2013Q4

REPORT INFORMATION
  Report Type: Spontaneous
  Country: US (occurrence: US)
  Receive Date: 20130404
  Receipt Date: 20131106
  Transmission Date: 20140711
  Serious: No
  Sender: FDA-Public Use
  Company Number: US-AMGEN-USASP2013015844

PATIENT
  Age: 68 Year
  Sex: Female

DRUGS (2)
  1. ENBREL [Suspect]
     Indication: RHEUMATOID ARTHRITIS
     Dosage: 50 MG, QWK
     Route: 058
     Dates: start: 20130221, end: 20130314
  2. HUMIRA [Concomitant]
     Dosage: UNK
     Dates: start: 201209, end: 201302

REACTIONS (6)
  - Rash maculo-papular [Recovered/Resolved]
  - Injection site erythema [Recovered/Resolved]
  - Injection site pruritus [Unknown]
  - Injection site warmth [Unknown]
  - Injection site swelling [Recovered/Resolved]
  - Injection site rash [Recovered/Resolved]
